FAERS Safety Report 7892330-6 (Version None)
Quarter: 2011Q4

REPORT INFORMATION
  Report Type: 
  Country: None (occurrence: None)
  Receive Date: 20111103
  Receipt Date: 20111103
  Transmission Date: 20120403
  Serious: No
  Sender: FDA-Public Use
  Company Number: None

PATIENT
  Age: 84 Year
  Sex: Male
  Weight: 64.91 kg

DRUGS (1)
  1. ALEMTUZUMAB [Suspect]
     Dosage: 7 MG ONCE IV
     Route: 042
     Dates: start: 20110718, end: 20110718

REACTIONS (4)
  - PYREXIA [None]
  - ANAPHYLACTIC REACTION [None]
  - HYPOTENSION [None]
  - CHILLS [None]
